FAERS Safety Report 17460855 (Version 1)
Quarter: 2020Q1

REPORT INFORMATION
  Report Type: Spontaneous
  Country: US (occurrence: US)
  Receive Date: 20200213
  Receipt Date: 20200213
  Transmission Date: 20200409
  Serious: No
  Sender: FDA-Public Use
  Company Number: None

PATIENT
  Sex: Female

DRUGS (5)
  1. VITAMIN D [Concomitant]
     Active Substance: VITAMIN D NOS
  2. BUPROPRION [Concomitant]
     Active Substance: BUPROPION
  3. REGLAN [Concomitant]
     Active Substance: METOCLOPRAMIDE HYDROCHLORIDE
  4. PIQRAY [Suspect]
     Active Substance: ALPELISIB
     Indication: BREAST CANCER FEMALE
     Dosage: ?          OTHER FREQUENCY:ONCE DAILY W/ FOOD;?
     Route: 048
     Dates: start: 20191218
  5. MORPHINE [Concomitant]
     Active Substance: MORPHINE

REACTIONS (3)
  - Seizure [None]
  - Therapy cessation [None]
  - Loss of consciousness [None]
